FAERS Safety Report 7815101-5 (Version None)
Quarter: 2011Q4

REPORT INFORMATION
  Report Type: 
  Country: None (occurrence: None)
  Receive Date: 20111014
  Receipt Date: 20111014
  Transmission Date: 20120403
  Serious: Yes (Other)
  Sender: FDA-Public Use
  Company Number: None

PATIENT
  Age: 22 Month
  Sex: Male
  Weight: 12.246 kg

DRUGS (3)
  1. PEGASPARGASE [Suspect]
     Indication: B PRECURSOR TYPE ACUTE LEUKAEMIA
  2. VINCRISTINE [Concomitant]
     Route: 042
  3. KYTRIL [Concomitant]
     Route: 042

REACTIONS (4)
  - IRRITABILITY [None]
  - URTICARIA [None]
  - LIP SWELLING [None]
  - ERYTHEMA [None]
